FAERS Safety Report 5347058-3 (Version None)
Quarter: 2007Q2

REPORT INFORMATION
  Report Type: 
  Country: None (occurrence: None)
  Receive Date: 20070604
  Receipt Date: 20070524
  Transmission Date: 20071010
  Serious: Yes (Hospitalization)
  Sender: FDA-Public Use
  Company Number: 2007SP010440

PATIENT
  Age: 44 Year
  Sex: Female
  Weight: 65.5901 kg

DRUGS (7)
  1. SCH 503034 (S-P) (HCV) (PROTEASE INHIBITOR) [Suspect]
     Indication: HEPATITIS C
     Dosage: 800 MG;TID;PO
     Route: 048
     Dates: start: 20070417, end: 20070523
  2. PEG-INTRON [Suspect]
     Indication: HEPATITIS C
     Dosage: 96 MCG
     Dates: start: 20070322
  3. RIBAVIRIN [Suspect]
     Indication: HEPATITIS C
     Dosage: 800 MG;PO
     Route: 048
     Dates: start: 20070322
  4. LEVOTHYROXINE SODIUM [Concomitant]
  5. ESCITALOPRAM OXALATE [Concomitant]
  6. ALPRAZOLAM [Concomitant]
  7. PHENERGAN HCL [Concomitant]

REACTIONS (15)
  - ANAEMIA [None]
  - BACTERIAL INFECTION [None]
  - BLOOD ALBUMIN DECREASED [None]
  - BLOOD CULTURE POSITIVE [None]
  - BLOOD GLUCOSE INCREASED [None]
  - BLOOD POTASSIUM DECREASED [None]
  - BLOOD SODIUM DECREASED [None]
  - DEHYDRATION [None]
  - DIARRHOEA [None]
  - DYSARTHRIA [None]
  - NEUTROPENIA [None]
  - PLATELET COUNT DECREASED [None]
  - RENAL FAILURE ACUTE [None]
  - SOMNOLENCE [None]
  - WHITE BLOOD CELL COUNT DECREASED [None]
